FAERS Safety Report 10097522 (Version 2)
Quarter: 2015Q2

REPORT INFORMATION
  Report Type: Report from Study
  Country: BR (occurrence: BR)
  Receive Date: 20140423
  Receipt Date: 20150423
  Transmission Date: 20150821
  Serious: Yes (Hospitalization)
  Sender: FDA-Public Use
  Company Number: BR-BIOGENIDEC-2014BI037601

PATIENT
  Age: 46 Year
  Sex: Female

DRUGS (23)
  1. LEVOID [Concomitant]
     Active Substance: LEVOTHYROXINE
  2. METAMUCIL [Concomitant]
     Active Substance: PLANTAGO SEED
  3. PETEMIC (NOS) [Concomitant]
  4. DRAMAMINE [Concomitant]
     Active Substance: DIMENHYDRINATE
  5. B6 [Concomitant]
     Active Substance: PYRIDOXINE HYDROCHLORIDE
  6. TYSABRI [Suspect]
     Active Substance: NATALIZUMAB
     Indication: MULTIPLE SCLEROSIS
     Route: 042
     Dates: start: 20120227
  7. LACTULONA [Concomitant]
  8. LUFTAL [Concomitant]
  9. MUVINOR [Concomitant]
  10. PANTOZOL [Concomitant]
     Active Substance: PANTOPRAZOLE SODIUM
  11. DIGESAN [Concomitant]
     Active Substance: BROMOPRIDE
  12. NOVALGIN [Concomitant]
     Active Substance: METAMIZOLE SODIUM
  13. OSCAL D [Concomitant]
     Active Substance: CALCIUM CARBONATE\CHOLECALCIFEROL
  14. SERTRALINE [Concomitant]
     Active Substance: SERTRALINE HYDROCHLORIDE
  15. CYCLOPHOSPHAMIDE. [Concomitant]
     Active Substance: CYCLOPHOSPHAMIDE
  16. NUJOL [Concomitant]
  17. COMPLEX B [Concomitant]
     Active Substance: CALCIUM PANTOTHENATE\CYANOCOBALAMIN\NIACINAMIDE\PYRIDOXINE HYDROCHLORIDE\RIBOFLAVIN\THIAMINE MONONITRATE
  18. DIOVAN [Concomitant]
     Active Substance: VALSARTAN
  19. MANTIDAN [Concomitant]
     Active Substance: AMANTADINE HYDROCHLORIDE
  20. STILNOX [Concomitant]
     Active Substance: ZOLPIDEM TARTRATE
  21. DONAREM [Concomitant]
  22. SELOZOC [Concomitant]
  23. RIVROTRIL [Concomitant]

REACTIONS (3)
  - Gastrointestinal hypomotility [Unknown]
  - Intestinal obstruction [Recovered/Resolved]
  - Faecaloma [Recovered/Resolved]

NARRATIVE: CASE EVENT DATE: 201401
